FAERS Safety Report 25481203 (Version 1)
Quarter: 2025Q2

REPORT INFORMATION
  Report Type: Spontaneous
  Country: FR (occurrence: FR)
  Receive Date: 20250626
  Receipt Date: 20250626
  Transmission Date: 20250717
  Serious: Yes (Hospitalization)
  Sender: TEVA
  Company Number: None

PATIENT
  Age: 78 Year
  Sex: Male
  Weight: 81 kg

DRUGS (2)
  1. PACLITAXEL [Suspect]
     Active Substance: PACLITAXEL
     Indication: Adenocarcinoma pancreas
     Dosage: 5 MG/ML
     Route: 042
     Dates: start: 20241024, end: 20250328
  2. FLUOROURACIL [Suspect]
     Active Substance: FLUOROURACIL
     Indication: Adenocarcinoma pancreas
     Route: 042
     Dates: start: 20241024, end: 20250328

REACTIONS (1)
  - Capillary leak syndrome [Not Recovered/Not Resolved]

NARRATIVE: CASE EVENT DATE: 20250415
